FAERS Safety Report 25988306 (Version 1)
Quarter: 2025Q4

REPORT INFORMATION
  Report Type: Spontaneous
  Country: US (occurrence: US)
  Receive Date: 20251103
  Receipt Date: 20251103
  Transmission Date: 20260117
  Serious: Yes (Other)
  Sender: AMGEN
  Company Number: US-AMGEN-USASP2025213907

PATIENT
  Sex: Female

DRUGS (1)
  1. REPATHA [Suspect]
     Active Substance: EVOLOCUMAB
     Indication: Hypercholesterolaemia
     Dosage: 140 MILLIGRAM, Q2WK
     Route: 058
     Dates: start: 2019

REACTIONS (5)
  - Aortic stenosis [Unknown]
  - Renal impairment [Unknown]
  - Microscopic polyangiitis [Unknown]
  - Arthritis [Unknown]
  - Product dose omission issue [Unknown]
